FAERS Safety Report 5913404-2 (Version None)
Quarter: 2008Q4

REPORT INFORMATION
  Report Type: 
  Country: None (occurrence: None)
  Receive Date: 20081009
  Receipt Date: 20080929
  Transmission Date: 20090506
  Serious: Yes (Death)
  Sender: FDA-Public Use
  Company Number: US-WYE-H01817707

PATIENT
  Sex: Male
  Weight: 100.79 kg

DRUGS (14)
  1. EFFEXOR XR [Suspect]
     Indication: DEPRESSION
  2. CELEBREX [Concomitant]
  3. AMBIEN [Concomitant]
  4. NEXIUM [Concomitant]
  5. COZAAR [Concomitant]
  6. IRON [Concomitant]
  7. BUSPAR [Concomitant]
  8. RELAFEN [Concomitant]
  9. CARAFATE [Concomitant]
  10. ONE-A-DAY [Concomitant]
  11. FOLIC ACID [Concomitant]
  12. ASCORBIC ACID/CALCIUM PANTOTHENATE/CYANOCOBALAMIN/NICOTINAMIDE/PYRIDOX [Concomitant]
  13. PAXIL [Suspect]
     Indication: DEPRESSION
  14. KLONOPIN [Concomitant]

REACTIONS (2)
  - COMPLETED SUICIDE [None]
  - GUN SHOT WOUND [None]
